FAERS Safety Report 23069770 (Version 1)
Quarter: 2023Q4

REPORT INFORMATION
  Report Type: Spontaneous
  Country: GB (occurrence: GB)
  Receive Date: 20231016
  Receipt Date: 20231016
  Transmission Date: 20240110
  Serious: Yes (Other)
  Sender: FDA-Public Use
  Company Number: GB-MHRA-TPP9916385C3473839YC1677153735042

PATIENT
  Age: 70 Year
  Sex: Male
  Weight: 104 kg

DRUGS (18)
  1. BUPRENORPHINE [Suspect]
     Active Substance: BUPRENORPHINE
     Indication: Product used for unknown indication
     Dosage: UNK
     Route: 065
     Dates: start: 20161202
  2. CALCIUM CARBONATE\SODIUM ALGINATE\SODIUM BICARBONATE [Concomitant]
     Active Substance: CALCIUM CARBONATE\SODIUM ALGINATE\SODIUM BICARBONATE
     Indication: Product used for unknown indication
     Dosage: 10-20MLS FOUR TIMES DAILY AS NEEDED
     Route: 065
     Dates: start: 20211012
  3. ASPIRIN [Concomitant]
     Active Substance: ASPIRIN
     Indication: Product used for unknown indication
     Dosage: TAKE ONE DAILY
     Route: 065
     Dates: start: 20170907
  4. ATORVASTATIN [Concomitant]
     Active Substance: ATORVASTATIN
     Indication: Product used for unknown indication
     Dosage: TAKE ONE TABLET AT NIGHT
     Route: 065
     Dates: start: 20170530
  5. BETAMETHASONE [Concomitant]
     Active Substance: BETAMETHASONE
     Indication: Product used for unknown indication
     Dosage: OFF LICENCE USE: 2 DROPS TO EACH EAR ONCE WEEKL...
     Route: 065
     Dates: start: 20230120
  6. BISOPROLOL [Concomitant]
     Active Substance: BISOPROLOL\BISOPROLOL FUMARATE
     Indication: Product used for unknown indication
     Dosage: TAKE ONE TABLET IN THE MORNING
     Route: 065
     Dates: start: 20170530
  7. BUPRENORPHINE [Concomitant]
     Active Substance: BUPRENORPHINE
     Indication: Product used for unknown indication
     Dosage: APPLY ONE PATCH TO DRY SKIN AND CHANGE ONCE A WEEK
     Route: 065
     Dates: start: 20161130
  8. CIPROFLOXACIN [Concomitant]
     Active Substance: CIPROFLOXACIN
     Indication: Product used for unknown indication
     Dosage: UPPER UTI, DIAGNOSED CLINICALLY - EMPIRIC OPTIO
     Route: 065
     Dates: start: 20221213, end: 20221220
  9. BECLOMETHASONE DIPROPIONATE [Concomitant]
     Active Substance: BECLOMETHASONE DIPROPIONATE
     Indication: Product used for unknown indication
     Dosage: 1 SPRAY ONTO SKIN
     Route: 065
     Dates: start: 20131011
  10. COCODAMOL [Concomitant]
     Active Substance: ACETAMINOPHEN\CODEINE PHOSPHATE
     Indication: Product used for unknown indication
     Dosage: TAKE 1 OR 2 CAPSULES 4 TIMES/DAY WHEN REQUIRED
     Route: 065
     Dates: start: 20170826
  11. FLUTICASONE FUROATE [Concomitant]
     Active Substance: FLUTICASONE FUROATE
     Indication: Product used for unknown indication
     Dosage: USE 2 SPRAYS EACH NOSTRIL ONCE DAILY
     Route: 065
     Dates: start: 20230120
  12. GABAPENTIN [Concomitant]
     Active Substance: GABAPENTIN
     Indication: Product used for unknown indication
     Dosage: TAKE ONE CAPSULE THREE TIMES A DAY
     Route: 065
     Dates: start: 20130419
  13. MEBEVERINE HYDROCHLORIDE [Concomitant]
     Active Substance: MEBEVERINE HYDROCHLORIDE
     Indication: Product used for unknown indication
     Dosage: TAKE ONE TABLET THREE TIMES DAY
     Route: 065
     Dates: start: 20161210
  14. MOVICOL [Concomitant]
     Active Substance: POLYETHYLENE GLYCOL 3350\POTASSIUM CHLORIDE\SODIUM BICARBONATE\SODIUM CHLORIDE
     Indication: Product used for unknown indication
     Dosage: TAKE ONE SACHET UP TO TWICE A DAY WHEN REQUIRED
     Route: 065
     Dates: start: 20170609
  15. OMEPRAZOLE [Concomitant]
     Active Substance: OMEPRAZOLE
     Indication: Product used for unknown indication
     Dosage: TAKE TWO CAPSULE IN THE MORNING
     Route: 065
     Dates: start: 20170530
  16. RAMIPRIL [Concomitant]
     Active Substance: RAMIPRIL
     Indication: Product used for unknown indication
     Dosage: TAKE ONE DAILY
     Route: 065
     Dates: start: 20170530
  17. SERTRALINE [Concomitant]
     Active Substance: SERTRALINE HYDROCHLORIDE
     Indication: Product used for unknown indication
     Dosage: TAKE ONE TABLET EACH MORNING
     Route: 065
     Dates: start: 20220725
  18. TAMSULOSIN HYDROCHLORIDE [Concomitant]
     Active Substance: TAMSULOSIN HYDROCHLORIDE
     Indication: Product used for unknown indication
     Dosage: TAKE ONE DAILY FOR BLADDER OUTFLOW SYMPTOMS / B...
     Route: 065
     Dates: start: 20220304

REACTIONS (2)
  - Nightmare [Unknown]
  - Abnormal dreams [Unknown]
